FAERS Safety Report 6831370-2 (Version None)
Quarter: 2010Q3

REPORT INFORMATION
  Report Type: 
  Country: None (occurrence: None)
  Receive Date: 20100712
  Receipt Date: 20100705
  Transmission Date: 20110219
  Serious: Yes (Life-Threatening, Hospitalization)
  Sender: FDA-Public Use
  Company Number: FR-AMGEN-KDC416315

PATIENT
  Sex: Female
  Weight: 51 kg

DRUGS (11)
  1. VECTIBIX [Suspect]
     Indication: BREAST CANCER
     Dates: start: 20100108, end: 20100514
  2. DOCETAXEL [Concomitant]
     Dates: start: 20100402
  3. LEVOTHYROXINE SODIUM [Concomitant]
     Dates: start: 20070101
  4. NEULASTA [Concomitant]
     Dates: start: 20100130
  5. CETYLPYRIDINIUM CHLORIDE [Concomitant]
     Dates: start: 20100108
  6. BICARBONATE [Concomitant]
     Dates: start: 20100108
  7. FUCIDINE [Concomitant]
     Dates: start: 20100503
  8. IXPRIM [Concomitant]
     Dates: start: 20100503
  9. MEDROL [Concomitant]
     Dates: start: 20100402
  10. AQUEOUS CREAM [Concomitant]
     Dates: start: 20100503
  11. TOBREX [Concomitant]
     Dates: start: 20100503

REACTIONS (1)
  - SKIN TOXICITY [None]
